FAERS Safety Report 6506874-2 (Version None)
Quarter: 2009Q4

REPORT INFORMATION
  Report Type: 
  Country: None (occurrence: None)
  Receive Date: 20091221
  Receipt Date: 20091215
  Transmission Date: 20100525
  Serious: Yes (Other)
  Sender: FDA-Public Use
  Company Number: JP-PFIZER INC-2009310130

PATIENT

DRUGS (3)
  1. ATARAX [Suspect]
     Dosage: UNK
  2. TRYPTANOL [Suspect]
     Route: 048
  3. DEPAS [Concomitant]
     Route: 048

REACTIONS (1)
  - NEUROLEPTIC MALIGNANT SYNDROME [None]
